FAERS Safety Report 6832073-0 (Version None)
Quarter: 2010Q3

REPORT INFORMATION
  Report Type: 
  Country: None (occurrence: None)
  Receive Date: 20100712
  Receipt Date: 20100706
  Transmission Date: 20110219
  Serious: Yes (Hospitalization)
  Sender: FDA-Public Use
  Company Number: FR-ROCHE-713697

PATIENT
  Age: 80 Year
  Sex: Male

DRUGS (6)
  1. ROCEPHIN [Suspect]
     Route: 051
     Dates: start: 20091102, end: 20091109
  2. OFLOCET [Suspect]
     Indication: PRODUCT USED FOR UNKNOWN INDICATION
     Route: 065
     Dates: start: 20091111, end: 20091114
  3. NEBCIN [Suspect]
     Indication: PRODUCT USED FOR UNKNOWN INDICATION
     Route: 051
     Dates: start: 20091111, end: 20091114
  4. TAZOCILLINE [Suspect]
     Indication: PRODUCT USED FOR UNKNOWN INDICATION
     Dosage: FORM: INFUSION.
     Route: 042
     Dates: start: 20091101, end: 20091123
  5. VANCOMYCIN HCL [Suspect]
     Indication: PRODUCT USED FOR UNKNOWN INDICATION
     Route: 051
     Dates: start: 20091101, end: 20091123
  6. AMIKIN [Suspect]
     Indication: PRODUCT USED FOR UNKNOWN INDICATION
     Dosage: SINGLE INTAKE, RECEIVED ONLY SINGLE DOSE.
     Route: 051
     Dates: start: 20091114, end: 20091114

REACTIONS (1)
  - ACUTE GENERALISED EXANTHEMATOUS PUSTULOSIS [None]
